FAERS Safety Report 11358814 (Version 1)
Quarter: 2015Q3

REPORT INFORMATION
  Report Type: Spontaneous
  Country: US (occurrence: None)
  Receive Date: 20150807
  Receipt Date: 20150807
  Transmission Date: 20151125
  Serious: Yes (Death)
  Sender: FDA-Public Use
  Company Number: None

PATIENT
  Sex: Male

DRUGS (1)
  1. EXJADE [Suspect]
     Active Substance: DEFERASIROX
     Indication: IRON METABOLISM DISORDER
     Dosage: 500MG 1 TABLET TID ORAL?DATES OF USE: 04/21/2014 - TIME OF DEATH
     Route: 048
     Dates: start: 20140421

REACTIONS (1)
  - Death [None]
